FAERS Safety Report 9931297 (Version 1)
Quarter: 2014Q1

REPORT INFORMATION
  Report Type: Report from Study
  Country: US (occurrence: US)
  Receive Date: 20140228
  Receipt Date: 20140228
  Transmission Date: 20141002
  Serious: Yes (Other)
  Sender: FDA-Public Use
  Company Number: US-ROCHE-1352758

PATIENT
  Sex: Male

DRUGS (20)
  1. AVASTIN [Suspect]
     Indication: DIABETIC RETINAL OEDEMA
     Route: 050
  2. AVASTIN [Suspect]
     Indication: DIABETIC RETINOPATHY
  3. AVASTIN [Suspect]
     Indication: DIABETIC EYE DISEASE
  4. KENALOG (UNITED STATES) [Concomitant]
     Route: 050
     Dates: start: 20110323
  5. LANTUS [Concomitant]
  6. OMEPRAZOLE [Concomitant]
  7. NOVOLOG [Concomitant]
  8. DIOVAN [Concomitant]
  9. GLIPIZIDE [Concomitant]
     Route: 065
  10. BIOTIN [Concomitant]
  11. ASPIRIN [Concomitant]
  12. HYDROCHLOROTHIAZIDE [Concomitant]
     Route: 048
  13. LEVOTHYROXINE SODIUM [Concomitant]
     Route: 048
  14. AMLODIPINE BESILATE/BENAZEPRIL HYDROCHLORIDE [Concomitant]
     Route: 048
  15. AMLODIPINE BESILATE/BENAZEPRIL HYDROCHLORIDE [Concomitant]
     Route: 048
  16. ALPHA LIPOIC ACID [Concomitant]
     Route: 065
  17. SIMVASTATIN [Concomitant]
     Dosage: IN THE EVENING
     Route: 048
  18. FLOMAX (UNITED STATES) [Concomitant]
     Dosage: 1/2 HOUR FOLLOWING THE SAME MEAL
     Route: 048
  19. KIONEX [Concomitant]
     Dosage: MIXED WITH WATER
     Route: 048
  20. NIACIN [Concomitant]
     Dosage: AT BEDTIME
     Route: 048

REACTIONS (6)
  - Cystoid macular oedema [Unknown]
  - Hyalosis asteroid [Unknown]
  - Cataract nuclear [Unknown]
  - Cataract cortical [Unknown]
  - Type 2 diabetes mellitus [Unknown]
  - Off label use [Unknown]
